FAERS Safety Report 8974626 (Version 3)
Quarter: 2013Q1

REPORT INFORMATION
  Report Type: Report from Study
  Country: US (occurrence: US)
  Receive Date: 20121219
  Receipt Date: 20130119
  Transmission Date: 20140127
  Serious: Yes (Other)
  Sender: FDA-Public Use
  Company Number: US-US-EMD SERONO, INC.-7182530

PATIENT
  Sex: Female

DRUGS (1)
  1. REBIF [Suspect]
     Indication: MULTIPLE SCLEROSIS
     Route: 058
     Dates: start: 20030618

REACTIONS (12)
  - Malignant melanoma in situ [Recovered/Resolved]
  - Mass [Recovering/Resolving]
  - Osteoarthritis [Recovering/Resolving]
  - Candida infection [Recovering/Resolving]
  - Onychomycosis [Recovering/Resolving]
  - JC virus test positive [Unknown]
  - Arthropathy [Not Recovered/Not Resolved]
  - Drug hypersensitivity [Recovering/Resolving]
  - Multiple sclerosis relapse [Recovered/Resolved]
  - Injection site pain [Recovering/Resolving]
  - Injection site erythema [Recovering/Resolving]
  - Injection site reaction [Not Recovered/Not Resolved]
